FAERS Safety Report 11364451 (Version 1)
Quarter: 2015Q3

REPORT INFORMATION
  Report Type: Spontaneous
  Country: US (occurrence: None)
  Receive Date: 20150810
  Receipt Date: 20150810
  Transmission Date: 20151125
  Serious: Yes (Hospitalization, Other)
  Sender: FDA-Public Use
  Company Number: None

PATIENT
  Age: 27 Year
  Sex: Female
  Weight: 62.14 kg

DRUGS (8)
  1. HAIR SKIN AND NAILS [Concomitant]
  2. DULOXETINE HCL [Suspect]
     Active Substance: DULOXETINE HYDROCHLORIDE
     Indication: ANXIETY
     Dosage: 1 PILL
     Route: 048
     Dates: start: 20150703, end: 20150729
  3. EXCERDRINE [Concomitant]
  4. ADDEROLL [Concomitant]
  5. VITAMIN B12 [Concomitant]
     Active Substance: CYANOCOBALAMIN
  6. VITAMIN D [Concomitant]
     Active Substance: CHOLECALCIFEROL
  7. ULTRAM [Concomitant]
     Active Substance: TRAMADOL HYDROCHLORIDE
  8. DULOXETINE HCL [Suspect]
     Active Substance: DULOXETINE HYDROCHLORIDE
     Indication: FIBROMYALGIA
     Dosage: 1 PILL
     Route: 048
     Dates: start: 20150703, end: 20150729

REACTIONS (17)
  - Nightmare [None]
  - Fatigue [None]
  - Hyperhidrosis [None]
  - Aggression [None]
  - Dizziness postural [None]
  - Middle insomnia [None]
  - Crying [None]
  - Anxiety [None]
  - Intentional overdose [None]
  - Depressed mood [None]
  - Hypoaesthesia [None]
  - Self injurious behaviour [None]
  - Paranoia [None]
  - Laceration [None]
  - Suicide attempt [None]
  - Restlessness [None]
  - Feelings of worthlessness [None]

NARRATIVE: CASE EVENT DATE: 20150717
